FAERS Safety Report 15779987 (Version 1)
Quarter: 2019Q1

REPORT INFORMATION
  Report Type: Spontaneous
  Country: GB (occurrence: GB)
  Receive Date: 20190102
  Receipt Date: 20190102
  Transmission Date: 20190417
  Serious: Yes (Other)
  Sender: FDA-Public Use
  Company Number: GB-ACCORD-093106

PATIENT
  Age: 69 Year
  Sex: Female
  Weight: 70.76 kg

DRUGS (4)
  1. ANASTROZOLE. [Suspect]
     Active Substance: ANASTROZOLE
     Indication: BREAST CANCER
     Route: 048
     Dates: start: 20170306, end: 20180304
  2. LIOTHYRONINE [Concomitant]
     Active Substance: LIOTHYRONINE
     Route: 065
  3. CALCIUM [Concomitant]
     Active Substance: CALCIUM
     Route: 065
     Dates: start: 1999
  4. ALFACALCIDOL [Concomitant]
     Active Substance: ALFACALCIDOL
     Route: 065

REACTIONS (8)
  - Inflammation [Unknown]
  - Blister [Unknown]
  - Trigger finger [Unknown]
  - Paraesthesia [Unknown]
  - Carpal tunnel syndrome [Unknown]
  - Asthenia [Unknown]
  - Oedema peripheral [Unknown]
  - Back pain [Unknown]
